FAERS Safety Report 4370118-0 (Version None)
Quarter: 2004Q2

REPORT INFORMATION
  Report Type: 
  Country: None (occurrence: None)
  Receive Date: 20040527
  Receipt Date: 20040520
  Transmission Date: 20050107
  Serious: Yes (Other)
  Sender: FDA-Public Use
  Company Number: CA-JNJFOC-20040405310

PATIENT
  Age: 73 Year
  Sex: Female

DRUGS (1)
  1. RISPERDAL [Suspect]
     Indication: DRUG USE FOR UNKNOWN INDICATION
     Dosage: 0.75 MG, IN 1 DAY, ORAL
     Route: 048
     Dates: start: 20020226, end: 20040501

REACTIONS (1)
  - CRYPTOGENIC ORGANIZING PNEUMONIA [None]
